FAERS Safety Report 8794024 (Version 2)
Quarter: 2012Q4

REPORT INFORMATION
  Report Type: 
  Country: AU (occurrence: AU)
  Receive Date: 20120917
  Receipt Date: 20120920
  Transmission Date: 20130627
  Serious: Yes (Hospitalization, Other)
  Sender: FDA-Public Use
  Company Number: PHHY2012AU079578

PATIENT
  Sex: Female

DRUGS (1)
  1. ESTRADERM MX [Suspect]
     Dosage: 100

REACTIONS (8)
  - Pain in extremity [Unknown]
  - Herpes zoster [Unknown]
  - Stress [Unknown]
  - Blister [Unknown]
  - Muscle spasms [Unknown]
  - Agitation [Unknown]
  - Hot flush [Unknown]
  - Back pain [Unknown]
